FAERS Safety Report 20083985 (Version 36)
Quarter: 2023Q4

REPORT INFORMATION
  Report Type: Spontaneous
  Country: CA (occurrence: CA)
  Receive Date: 20211118
  Receipt Date: 20231117
  Transmission Date: 20240109
  Serious: Yes (Hospitalization, Other)
  Sender: FDA-Public Use
  Company Number: CA-CELLTRION INC.-2021CA012026

PATIENT

DRUGS (30)
  1. INFLECTRA [Suspect]
     Active Substance: INFLIXIMAB-DYYB
     Indication: Colitis ulcerative
     Dosage: 400 MG, AT 0, 2, 6 THEN EVERY 8 WEEKS
     Route: 042
     Dates: start: 20210805, end: 20210805
  2. INFLECTRA [Suspect]
     Active Substance: INFLIXIMAB-DYYB
     Dosage: 400 MG, AT 0, 2, 6 THEN EVERY 8 WEEKS
     Route: 042
     Dates: start: 20210820
  3. INFLECTRA [Suspect]
     Active Substance: INFLIXIMAB-DYYB
     Dosage: 400 MG, AT 0, 2, 6 THEN EVERY 8 WEEKS
     Route: 042
     Dates: start: 20210921
  4. INFLECTRA [Suspect]
     Active Substance: INFLIXIMAB-DYYB
     Dosage: 400 MG, AT 0, 2, 6 THEN EVERY 8 WEEKS
     Route: 042
     Dates: start: 20211117
  5. INFLECTRA [Suspect]
     Active Substance: INFLIXIMAB-DYYB
     Dosage: 400 MG, AT 0, 2, 6 THEN EVERY 8 WEEKS
     Route: 042
     Dates: start: 20220111
  6. INFLECTRA [Suspect]
     Active Substance: INFLIXIMAB-DYYB
     Dosage: 400 MG, AT 0, 2, 6 THEN EVERY 8 WEEKS
     Route: 042
     Dates: start: 20220308
  7. INFLECTRA [Suspect]
     Active Substance: INFLIXIMAB-DYYB
     Dosage: 5MG/KG, EVERY 4 WEEKS
     Route: 042
     Dates: start: 20220324
  8. INFLECTRA [Suspect]
     Active Substance: INFLIXIMAB-DYYB
     Dosage: 400 MG EVERY 4 WEEKS, 5 MG/KG ROUNDED DOWN
     Route: 042
     Dates: start: 20220420
  9. INFLECTRA [Suspect]
     Active Substance: INFLIXIMAB-DYYB
     Dosage: 400 MG, EVERY 4 WEEKS, 5 MG/KG ROUNDED DOWN
     Route: 042
     Dates: start: 20220610
  10. INFLECTRA [Suspect]
     Active Substance: INFLIXIMAB-DYYB
     Dosage: 400 MG, EVERY 4 WEEKS, 5 MG/KG ROUNDED DOWN
     Route: 042
     Dates: start: 20220712
  11. INFLECTRA [Suspect]
     Active Substance: INFLIXIMAB-DYYB
     Dosage: 400 MG, EVERY 4 WEEKS, 5 MG/KG ROUNDED DOWN
     Route: 042
     Dates: start: 20220810
  12. INFLECTRA [Suspect]
     Active Substance: INFLIXIMAB-DYYB
     Dosage: 400 MG, EVERY 4 WEEKS,5 MG/KG ROUNDED DOWN
     Route: 042
     Dates: start: 20220926
  13. INFLECTRA [Suspect]
     Active Substance: INFLIXIMAB-DYYB
     Dosage: 400 MG, EVERY 4 WEEKS,5 MG/KG ROUNDED DOWN
     Route: 042
     Dates: start: 20221107
  14. INFLECTRA [Suspect]
     Active Substance: INFLIXIMAB-DYYB
     Dosage: 400 MG, EVERY 4 WEEKS,5 MG/KG ROUNDED DOWN
     Route: 042
     Dates: start: 20221215
  15. INFLECTRA [Suspect]
     Active Substance: INFLIXIMAB-DYYB
     Dosage: 400 MG , EVERY 4 WEEKS ,5MG/KG ROUNDED DOWN
     Route: 042
     Dates: start: 20230112
  16. INFLECTRA [Suspect]
     Active Substance: INFLIXIMAB-DYYB
     Dosage: 400 MG , EVERY 4 WEEKS ,5MG/KG ROUNDED DOWN
     Route: 042
     Dates: start: 20230214
  17. INFLECTRA [Suspect]
     Active Substance: INFLIXIMAB-DYYB
     Dosage: 400 MG, EVERY 6 WEEKS
     Route: 042
     Dates: start: 20230321
  18. INFLECTRA [Suspect]
     Active Substance: INFLIXIMAB-DYYB
     Dosage: 400 MG, EVERY 6 WEEKS
     Route: 042
     Dates: start: 20230418
  19. INFLECTRA [Suspect]
     Active Substance: INFLIXIMAB-DYYB
     Dosage: 400 MG 6 WEEKS AFTER LAST INFUSION (SUPPOSED TO RECEIVE EVERY 4 WEEKS)
     Route: 042
     Dates: start: 20230530
  20. INFLECTRA [Suspect]
     Active Substance: INFLIXIMAB-DYYB
     Dosage: 400 MG, EVERY 4 WEEKS
     Route: 042
     Dates: start: 20230630
  21. INFLECTRA [Suspect]
     Active Substance: INFLIXIMAB-DYYB
     Dosage: 400 MG, EVERY 4 WEEKS
     Route: 042
     Dates: start: 20230825
  22. INFLECTRA [Suspect]
     Active Substance: INFLIXIMAB-DYYB
     Dosage: 400 MG, AFTER 3 WEEKS AND 6 DAYS
     Route: 042
     Dates: start: 20230922
  23. INFLECTRA [Suspect]
     Active Substance: INFLIXIMAB-DYYB
     Dosage: 400 MG, 6 WEEKS 3 DAYS
     Route: 042
     Dates: start: 20231106
  24. BENADRYL [Concomitant]
     Active Substance: DIPHENHYDRAMINE HYDROCHLORIDE
     Indication: Premedication
     Dosage: 50 MG
     Route: 042
     Dates: start: 20210820, end: 20210820
  25. LORAZEPAM [Concomitant]
     Active Substance: LORAZEPAM
     Dosage: 500 UG
     Route: 048
  26. PREDNISONE [Concomitant]
     Active Substance: PREDNISONE
     Dosage: 5 MG, 1X/DAY
     Route: 065
     Dates: start: 202101
  27. PREDNISONE [Concomitant]
     Active Substance: PREDNISONE
     Dosage: 15 MG
     Route: 048
     Dates: start: 20220810
  28. MESALAMINE [Concomitant]
     Active Substance: MESALAMINE
     Dosage: 1 G, 3X/DAY
     Route: 065
     Dates: start: 2020
  29. TINZAPARIN [Concomitant]
     Active Substance: TINZAPARIN
     Dosage: 14000 IU
     Route: 058
     Dates: start: 20221101
  30. TINZAPARIN [Concomitant]
     Active Substance: TINZAPARIN
     Dosage: 14000 IU
     Route: 058
     Dates: start: 20211101

REACTIONS (33)
  - Pulmonary embolism [Unknown]
  - Condition aggravated [Recovered/Resolved]
  - COVID-19 [Recovered/Resolved]
  - Lower respiratory tract infection bacterial [Not Recovered/Not Resolved]
  - Sinusitis bacterial [Not Recovered/Not Resolved]
  - Infusion site rash [Recovered/Resolved]
  - Off label use [Unknown]
  - Inappropriate schedule of product administration [Unknown]
  - Prostatitis [Unknown]
  - Condition aggravated [Recovered/Resolved]
  - Blood pressure diastolic decreased [Recovered/Resolved]
  - Penile pain [Not Recovered/Not Resolved]
  - Painful erection [Not Recovered/Not Resolved]
  - Testicular pain [Not Recovered/Not Resolved]
  - Pruritus [Not Recovered/Not Resolved]
  - Throat irritation [Recovered/Resolved]
  - Arthritis [Not Recovered/Not Resolved]
  - Malaise [Recovering/Resolving]
  - Pyrexia [Not Recovered/Not Resolved]
  - Infection [Unknown]
  - Viral infection [Recovered/Resolved]
  - Respiratory tract congestion [Recovered/Resolved]
  - Sinus congestion [Recovered/Resolved]
  - Nasal congestion [Not Recovered/Not Resolved]
  - Tooth infection [Not Recovered/Not Resolved]
  - Pulpitis dental [Not Recovered/Not Resolved]
  - Gingival swelling [Not Recovered/Not Resolved]
  - Fatigue [Not Recovered/Not Resolved]
  - Rhinorrhoea [Recovering/Resolving]
  - Oropharyngeal pain [Not Recovered/Not Resolved]
  - Influenza [Not Recovered/Not Resolved]
  - Nasopharyngitis [Not Recovered/Not Resolved]
  - Sinusitis [Not Recovered/Not Resolved]

NARRATIVE: CASE EVENT DATE: 20210805
